FAERS Safety Report 12087063 (Version 1)
Quarter: 2016Q1

REPORT INFORMATION
  Report Type: Spontaneous
  Country: US (occurrence: US)
  Receive Date: 20160217
  Receipt Date: 20160217
  Transmission Date: 20160526
  Serious: No
  Sender: FDA-Public Use
  Company Number: US-ALLERGAN-1506251US

PATIENT
  Sex: Female

DRUGS (3)
  1. REFRESH                            /00007001/ [Concomitant]
     Indication: DRY EYE
     Dosage: UNK
  2. FLAX SEEDS TABLETS [Concomitant]
     Indication: DRY EYE
     Dosage: UNK
     Route: 048
  3. RESTASIS [Suspect]
     Active Substance: CYCLOSPORINE
     Indication: DRY EYE
     Dosage: 2 GTT, UNK
     Route: 047
     Dates: start: 201501

REACTIONS (1)
  - Drug ineffective [Not Recovered/Not Resolved]
